FAERS Safety Report 20628326 (Version 1)
Quarter: 2022Q1

REPORT INFORMATION
  Report Type: Spontaneous
  Country: IT (occurrence: IT)
  Receive Date: 20220323
  Receipt Date: 20220323
  Transmission Date: 20220423
  Serious: Yes (Other)
  Sender: FDA-Public Use
  Company Number: None

PATIENT
  Age: 31 Year
  Sex: Male
  Weight: 80 kg

DRUGS (1)
  1. DOXYCYCLINE [Suspect]
     Active Substance: DOXYCYCLINE
     Indication: Psoriasis
     Dosage: 100 MG, 1X/DAY
     Route: 048
     Dates: start: 20210901, end: 20211207

REACTIONS (7)
  - Off label use [Unknown]
  - Drug ineffective for unapproved indication [Unknown]
  - Subcutaneous abscess [Unknown]
  - Groin abscess [Unknown]
  - Scrotal abscess [Unknown]
  - Nodule [Unknown]
  - Hidradenitis [Unknown]

NARRATIVE: CASE EVENT DATE: 20210901
